FAERS Safety Report 9476078 (Version 1)
Quarter: 2013Q3

REPORT INFORMATION
  Report Type: Spontaneous
  Country: FR (occurrence: None)
  Receive Date: 20130821
  Receipt Date: 20130821
  Transmission Date: 20140515
  Serious: Yes (Hospitalization)
  Sender: FDA-Public Use
  Company Number: SYM-2013-09134

PATIENT
  Age: 50 Year
  Sex: Male

DRUGS (5)
  1. ANCOTIL [Suspect]
     Route: 042
     Dates: start: 20130708, end: 20130720
  2. VANCOMYCIN [Suspect]
     Route: 042
     Dates: start: 20130701, end: 20130723
  3. CELLCEPT [Suspect]
     Route: 042
     Dates: start: 20130612, end: 20130720
  4. AMBISONE [Suspect]
     Route: 042
     Dates: start: 20130708, end: 20130720
  5. PROGRAF [Suspect]
     Route: 042
     Dates: start: 20130709

REACTIONS (2)
  - Neutropenia [None]
  - Sepsis [None]
